FAERS Safety Report 6532376-3 (Version None)
Quarter: 2010Q1

REPORT INFORMATION
  Report Type: 
  Country: None (occurrence: None)
  Receive Date: 20100108
  Receipt Date: 20100104
  Transmission Date: 20100710
  Serious: Yes (Death, Hospitalization)
  Sender: FDA-Public Use
  Company Number: US-GILEAD-2009-0026241

PATIENT
  Sex: Male

DRUGS (7)
  1. LETAIRIS [Suspect]
     Indication: PULMONARY ARTERIAL HYPERTENSION
     Route: 048
     Dates: start: 20090207, end: 20091213
  2. FLOMAX [Concomitant]
  3. VYTORIN [Concomitant]
  4. PREDNISONE [Concomitant]
  5. INSULIN [Concomitant]
  6. METFORMIN [Concomitant]
  7. GLIPIZIDE [Concomitant]

REACTIONS (1)
  - IDIOPATHIC PULMONARY FIBROSIS [None]
